FAERS Safety Report 7747405-9 (Version None)
Quarter: 2011Q3

REPORT INFORMATION
  Report Type: 
  Country: None (occurrence: None)
  Receive Date: 20110913
  Receipt Date: 20110901
  Transmission Date: 20111222
  Serious: Yes (Other)
  Sender: FDA-Public Use
  Company Number: FR-GLAXOSMITHKLINE-B0698105A

PATIENT
  Sex: Male
  Weight: 64.2 kg

DRUGS (2)
  1. CASODEX [Concomitant]
     Indication: PROSTATE CANCER
     Route: 048
  2. ARIXTRA [Suspect]
     Indication: THROMBOSIS PROPHYLAXIS
     Dosage: 1INJ PER DAY
     Route: 058
     Dates: start: 20101231, end: 20110118

REACTIONS (3)
  - MUSCLE HAEMORRHAGE [None]
  - HAEMOGLOBIN DECREASED [None]
  - RENAL FAILURE [None]
